FAERS Safety Report 9549876 (Version 1)
Quarter: 2013Q3

REPORT INFORMATION
  Report Type: Spontaneous
  Country: US (occurrence: US)
  Receive Date: 20130924
  Receipt Date: 20130924
  Transmission Date: 20140515
  Serious: No
  Sender: FDA-Public Use
  Company Number: US-009507513-1212USA004478

PATIENT
  Age: 16 Year
  Sex: Female

DRUGS (3)
  1. BETAMETHASONE [Suspect]
     Dosage: COURSE OF 2 DOSES
  2. MAGNESIUM (UNSPECIFIED) [Concomitant]
     Indication: TOCOLYSIS
  3. MAGNESIUM (UNSPECIFIED) [Concomitant]
     Indication: PALLIATIVE CARE

REACTIONS (1)
  - Exposure during pregnancy [Unknown]
